FAERS Safety Report 17319662 (Version 2)
Quarter: 2020Q1

REPORT INFORMATION
  Report Type: Report from Study
  Country: JP (occurrence: JP)
  Receive Date: 20200125
  Receipt Date: 20200320
  Transmission Date: 20200409
  Serious: Yes (Death, Life-Threatening, Other)
  Sender: FDA-Public Use
  Company Number: JP-AMGEN-JPNCT2020012449

PATIENT
  Age: 79 Year
  Sex: Female

DRUGS (14)
  1. DARBEPOETIN ALFA [Suspect]
     Active Substance: DARBEPOETIN ALFA
     Indication: MYELODYSPLASTIC SYNDROME
     Dosage: 240 MICROGRAM, QWK
     Route: 058
     Dates: start: 20150110, end: 20150516
  2. WARFARIN [Concomitant]
     Active Substance: WARFARIN
     Indication: ATRIAL FIBRILLATION
     Dosage: UNK
     Route: 048
     Dates: end: 20150519
  3. VIDAZA [Concomitant]
     Active Substance: AZACITIDINE
     Indication: MYELODYSPLASTIC SYNDROME
     Dosage: 100 MG
     Route: 065
     Dates: end: 20150110
  4. CELOOP [Concomitant]
     Indication: GASTRIC ULCER
     Dosage: UNK
     Route: 048
     Dates: end: 20150519
  5. L CARTIN FF [Concomitant]
     Active Substance: LEVOCARNITINE
     Dosage: UNK
     Route: 065
     Dates: end: 20150519
  6. REGPARA [Concomitant]
     Active Substance: CINACALCET HYDROCHLORIDE
     Indication: HYPERPARATHYROIDISM SECONDARY
     Dosage: UNK
     Route: 048
     Dates: end: 20150519
  7. OLOPATADINE HYDROCHLORIDE OD [Concomitant]
     Indication: CHRONIC KIDNEY DISEASE
     Dosage: UNK
     Route: 048
     Dates: end: 20150519
  8. BAYASPIRIN [Concomitant]
     Active Substance: ASPIRIN
     Dosage: UNK
     Route: 048
     Dates: end: 20150519
  9. ARTIST [Concomitant]
     Active Substance: CARVEDILOL
     Indication: ATRIAL FIBRILLATION
     Dosage: UNK
     Route: 048
     Dates: end: 20150519
  10. L CARTIN FF [Concomitant]
     Active Substance: LEVOCARNITINE
     Indication: RENAL FAILURE
  11. RABEPRAZOLE NA [Concomitant]
     Active Substance: RABEPRAZOLE SODIUM
     Indication: GASTRIC ULCER
     Dosage: UNK
     Route: 048
     Dates: end: 20150519
  12. L CARTIN FF [Concomitant]
     Active Substance: LEVOCARNITINE
     Indication: CHRONIC KIDNEY DISEASE
  13. FUROSEMIDE. [Concomitant]
     Active Substance: FUROSEMIDE
     Indication: CHRONIC KIDNEY DISEASE
     Dosage: UNK
     Route: 048
     Dates: end: 20150519
  14. VIDAZA [Concomitant]
     Active Substance: AZACITIDINE
     Dosage: 100 MG
     Route: 065
     Dates: start: 20150328, end: 20150519

REACTIONS (5)
  - Blood lactate dehydrogenase increased [Unknown]
  - Altered state of consciousness [Fatal]
  - Insomnia [Unknown]
  - Hyperkalaemia [Recovered/Resolved]
  - Constipation [Unknown]

NARRATIVE: CASE EVENT DATE: 20150505
